FAERS Safety Report 6878050-5 (Version None)
Quarter: 2010Q3

REPORT INFORMATION
  Report Type: 
  Country: None (occurrence: None)
  Receive Date: 20100727
  Receipt Date: 20100720
  Transmission Date: 20110219
  Serious: Yes (Hospitalization)
  Sender: FDA-Public Use
  Company Number: PHHO2009DE05879

PATIENT
  Sex: Female

DRUGS (5)
  1. CERTICAN [Suspect]
     Indication: LIVER TRANSPLANT
     Dosage: 8MG
     Route: 048
     Dates: start: 20090310
  2. CERTICAN [Suspect]
     Dosage: 3 MG, BID
     Route: 048
     Dates: end: 20090803
  3. SIMULECT [Suspect]
     Route: 042
  4. PROGRAF [Suspect]
     Indication: PROPHYLAXIS AGAINST TRANSPLANT REJECTION
     Dosage: OPEN LABEL
     Route: 048
     Dates: start: 20090710
  5. DECORTIN [Concomitant]
     Indication: IMMUNOSUPPRESSION
     Dosage: OPEN LABEL
     Route: 048

REACTIONS (5)
  - CHOLANGITIS [None]
  - HEPATIC ENZYME INCREASED [None]
  - HEPATIC STEATOSIS [None]
  - HEPATITIS C [None]
  - TRANSAMINASES INCREASED [None]
